FAERS Safety Report 14930879 (Version 1)
Quarter: 2018Q2

REPORT INFORMATION
  Report Type: Spontaneous
  Country: US (occurrence: US)
  Receive Date: 20180524
  Receipt Date: 20180524
  Transmission Date: 20180711
  Serious: No
  Sender: FDA-Public Use
  Company Number: US-BAUSCH-BL-2017-031880

PATIENT
  Age: 74 Year
  Sex: Female
  Weight: 50.39 kg

DRUGS (7)
  1. PROLENSA [Suspect]
     Active Substance: BROMFENAC SODIUM
     Route: 047
     Dates: start: 20171031, end: 20171031
  2. DUREZOL [Concomitant]
     Active Substance: DIFLUPREDNATE
     Dosage: IN THE RIGHT EYE (THIRD WEEK)
     Route: 047
     Dates: end: 20171120
  3. PROLENSA [Suspect]
     Active Substance: BROMFENAC SODIUM
     Indication: PREOPERATIVE CARE
     Dosage: 1 DROP IN THE RIGHT EYE ONCE AT NIGHT
     Route: 047
     Dates: start: 20171029, end: 20171030
  4. BESIVANCE [Concomitant]
     Active Substance: BESIFLOXACIN
     Indication: PRODUCT USED FOR UNKNOWN INDICATION
     Dosage: IN THE RIGHT EYE
     Route: 047
     Dates: start: 20171029, end: 20171116
  5. PROLENSA [Suspect]
     Active Substance: BROMFENAC SODIUM
     Dosage: 1 DROP IN THE RIGHT EYE ONCE AT NIGHT
     Route: 047
     Dates: start: 20171101
  6. DUREZOL [Concomitant]
     Active Substance: DIFLUPREDNATE
     Dosage: IN THE RIGHT EYE (SECOND WEEK)
     Route: 047
  7. DUREZOL [Concomitant]
     Active Substance: DIFLUPREDNATE
     Indication: PRODUCT USED FOR UNKNOWN INDICATION
     Dosage: IN THE RIGHT EYE
     Route: 047
     Dates: start: 20171031

REACTIONS (4)
  - Foreign body in eye [Unknown]
  - Eye pain [Recovering/Resolving]
  - Off label use [Not Recovered/Not Resolved]
  - Incorrect dose administered [Recovered/Resolved]

NARRATIVE: CASE EVENT DATE: 2017
